FAERS Safety Report 7464522-1 (Version None)
Quarter: 2011Q1

REPORT INFORMATION
  Report Type: 
  Country: None (occurrence: None)
  Receive Date: 20110302
  Receipt Date: 20101207
  Transmission Date: 20110831
  Serious: Yes (Death)
  Sender: FDA-Public Use
  Company Number: 163-21880-10120775

PATIENT
  Age: 74 Year
  Sex: Male

DRUGS (9)
  1. DEXAMETHASONE [Concomitant]
  2. FINASTERIDE [Concomitant]
  3. GEMFIBROZIL [Concomitant]
  4. REVLIMID [Suspect]
     Indication: MULTIPLE MYELOMA
     Dosage: 15 MG, DAILY 21D/28D, PO
     Route: 048
     Dates: start: 20090601, end: 20100101
  5. GLIPIZIDE [Concomitant]
  6. K-TAB [Concomitant]
  7. PRAVASTATIN [Concomitant]
  8. LANTUS [Concomitant]
  9. COZAAR [Concomitant]

REACTIONS (2)
  - DEATH [None]
  - MULTIPLE MYELOMA [None]
